FAERS Safety Report 9719183 (Version 3)
Quarter: 2014Q1

REPORT INFORMATION
  Report Type: Spontaneous
  Country: IT (occurrence: IT)
  Receive Date: 20131127
  Receipt Date: 20140124
  Transmission Date: 20141002
  Serious: Yes (Hospitalization)
  Sender: FDA-Public Use
  Company Number: PHHY2013IT133974

PATIENT
  Age: 63 Year
  Sex: Male

DRUGS (10)
  1. POTASSIUM CHLORIDE [Suspect]
     Dates: start: 20130801, end: 20131108
  2. RAMIPRIL [Suspect]
     Indication: HYPERTENSION
     Dosage: 1 DF, QD
     Route: 048
     Dates: start: 20130901, end: 20131108
  3. KANRENOL [Suspect]
     Indication: HYPERTENSION
     Dosage: 200 MG, QD
     Route: 048
     Dates: start: 20130926, end: 20131108
  4. FERRO-GRAD [Concomitant]
     Dosage: 105 MG
     Route: 048
  5. BISOPROLOL [Concomitant]
     Dosage: 2.5 MG
     Route: 048
  6. ATORVASTATIN [Concomitant]
     Dosage: 20 MG
     Route: 048
  7. DORZOLAMIDE [Concomitant]
     Route: 047
  8. TIMOLOL [Concomitant]
  9. INSULIN LISPRO [Concomitant]
     Indication: DIABETES MELLITUS
     Dosage: 30 U
     Route: 058
  10. INSULIN GLARGINE [Concomitant]
     Indication: DIABETES MELLITUS
     Dosage: 30 U
     Route: 058

REACTIONS (2)
  - Hypokalaemia [Recovered/Resolved]
  - Fatigue [Recovered/Resolved]
